FAERS Safety Report 9267293 (Version 1)
Quarter: 2013Q2

REPORT INFORMATION
  Report Type: Spontaneous
  Country: BR (occurrence: BR)
  Receive Date: 20130502
  Receipt Date: 20130502
  Transmission Date: 20140414
  Serious: Yes (Other)
  Sender: FDA-Public Use
  Company Number: BR-AMGEN-BRASP2013030000

PATIENT
  Age: 53 Year
  Sex: Female
  Weight: 94 kg

DRUGS (2)
  1. ENBREL [Suspect]
     Indication: RHEUMATOID ARTHRITIS
     Dosage: 50 MG, ONCE WEEKLY
     Route: 058
  2. PREDNISONE [Concomitant]
     Dosage: 5 MG, UNK

REACTIONS (1)
  - Hepatic cirrhosis [Unknown]
